FAERS Safety Report 9659662 (Version 1)
Quarter: 2013Q4

REPORT INFORMATION
  Report Type: Spontaneous
  Country: US (occurrence: None)
  Receive Date: 20131029
  Receipt Date: 20131029
  Transmission Date: 20140711
  Serious: Yes (Other)
  Sender: FDA-Public Use
  Company Number: 2013TP000595

PATIENT
  Age: 76 Year
  Sex: Female

DRUGS (7)
  1. LIDODERM [Suspect]
     Indication: ARTHRITIS
     Dosage: 2 PATCH ; PRN ; TOP
     Dates: start: 200810, end: 201310
  2. LIDODERM [Suspect]
     Indication: LUMBAR SPINAL STENOSIS
     Dosage: 2 PATCH ; PRN ; TOP
     Dates: start: 200810, end: 201310
  3. SYNTHROID [Concomitant]
  4. ZESTRIL [Concomitant]
  5. LORATADINE [Concomitant]
  6. MULTIVITAMINS [Concomitant]
  7. VITAMIN-B COMPLEX [Concomitant]

REACTIONS (4)
  - Surgery [None]
  - Multiple injuries [None]
  - Pancreatic carcinoma [None]
  - Expired device used [None]
